FAERS Safety Report 6343248-1 (Version None)
Quarter: 2009Q3

REPORT INFORMATION
  Report Type: 
  Country: None (occurrence: None)
  Receive Date: 20090908
  Receipt Date: 20090828
  Transmission Date: 20100115
  Serious: Yes (Other)
  Sender: FDA-Public Use
  Company Number: CA-JNJFOC-20090900265

PATIENT
  Age: 20 Year
  Sex: Male

DRUGS (1)
  1. REMICADE [Suspect]
     Indication: RHEUMATOID ARTHRITIS
     Dosage: INITIATED ON 24-JUL-09, HE IS AT HIS 20TH INFUSION
     Route: 042

REACTIONS (2)
  - LUNG OPERATION [None]
  - PNEUMONIA BACTERIAL [None]
